FAERS Safety Report 17740164 (Version 1)
Quarter: 2020Q2

REPORT INFORMATION
  Report Type: Spontaneous
  Country: US (occurrence: US)
  Receive Date: 20200504
  Receipt Date: 20200504
  Transmission Date: 20200714
  Serious: Yes (Other)
  Sender: FDA-Public Use
  Company Number: US-PFIZER INC-2020173373

PATIENT
  Sex: Female

DRUGS (11)
  1. VANCOMYCIN HCL [Suspect]
     Active Substance: VANCOMYCIN HYDROCHLORIDE
     Indication: SEPSIS
     Dosage: UNK
     Dates: start: 20200410
  2. DOPAMINE [Concomitant]
     Active Substance: DOPAMINE HYDROCHLORIDE
     Indication: MEAN ARTERIAL PRESSURE
     Dosage: UNK
     Dates: start: 20200410
  3. CAFFEINE CITRATE. [Concomitant]
     Active Substance: CAFFEINE CITRATE
     Dosage: UNK
  4. DOPAMINE [Concomitant]
     Active Substance: DOPAMINE HYDROCHLORIDE
     Dosage: 5MCG/KG/MIN
     Dates: start: 20200417
  5. CEFTAZIDIME. [Concomitant]
     Active Substance: CEFTAZIDIME
     Indication: SEPSIS
     Dosage: UNK
     Dates: start: 20200410
  6. BACITRACIN. [Concomitant]
     Active Substance: BACITRACIN
     Dosage: UNK
  7. MIDAZOLAM. [Concomitant]
     Active Substance: MIDAZOLAM
     Dosage: UNK
  8. VANCOMYCIN HCL [Suspect]
     Active Substance: VANCOMYCIN HYDROCHLORIDE
     Dosage: UNK (INTERMITTENT DOSE)
     Dates: start: 202004
  9. FENTANYL. [Concomitant]
     Active Substance: FENTANYL
     Indication: PAIN MANAGEMENT
     Dosage: UNK
     Dates: start: 20200407
  10. SILDENAFIL. [Concomitant]
     Active Substance: SILDENAFIL
     Indication: BRONCHOPULMONARY DYSPLASIA
     Dosage: 0.12 MG, 3X/DAY (6 DOSES, EVERY 8 HOURLY)
     Route: 042
     Dates: start: 20200416, end: 20200418
  11. PHENOBARBITAL. [Concomitant]
     Active Substance: PHENOBARBITAL
     Dosage: UNK

REACTIONS (1)
  - Blood creatinine increased [Unknown]

NARRATIVE: CASE EVENT DATE: 202004
